FAERS Safety Report 8196536-0 (Version None)
Quarter: 2012Q1

REPORT INFORMATION
  Report Type: 
  Country: None (occurrence: None)
  Receive Date: 20120309
  Receipt Date: 20120227
  Transmission Date: 20120608
  Serious: Yes (Other)
  Sender: FDA-Public Use
  Company Number: US-JNJFOC-20120204250

PATIENT
  Sex: Female
  Weight: 77.11 kg

DRUGS (11)
  1. LEVOTHYROXINE SODIUM [Concomitant]
     Indication: HYPOTHYROIDISM
     Route: 065
  2. MULTI-VITAMINS [Concomitant]
     Route: 065
  3. BENADRYL [Concomitant]
     Indication: PREMEDICATION
     Route: 065
  4. ARAVA [Concomitant]
     Indication: RHEUMATOID ARTHRITIS
     Route: 065
  5. VICODIN [Concomitant]
     Indication: PAIN
     Dosage: DOSE: 5/500 MG
     Route: 065
  6. TYLENOL [Concomitant]
     Indication: PREMEDICATION
     Route: 065
  7. VITAMIN D [Concomitant]
     Route: 065
  8. REMICADE [Suspect]
     Dosage: INFUSION WAS STOPPED AND LATER RESUMED.  300 MG
     Route: 042
     Dates: start: 20120125
  9. VICODIN [Concomitant]
     Indication: RHEUMATOID ARTHRITIS
     Dosage: DOSE: 5/500 MG
     Route: 065
  10. REMICADE [Suspect]
     Indication: RHEUMATOID ARTHRITIS
     Dosage: 300 MG
     Route: 042
  11. TRIAMTERENE AND HYDROCHLOROTHIAZIDE [Concomitant]
     Indication: HYPERTENSION
     Dosage: DOSE: 37.5/25 MG
     Route: 065

REACTIONS (6)
  - DIZZINESS [None]
  - RHEUMATOID ARTHRITIS [None]
  - PRURITUS [None]
  - INFUSION RELATED REACTION [None]
  - BASAL CELL CARCINOMA [None]
  - BLOOD PRESSURE DECREASED [None]
